FAERS Safety Report 4521078-0 (Version None)
Quarter: 2004Q4

REPORT INFORMATION
  Report Type: 
  Country: None (occurrence: None)
  Receive Date: 20041203
  Receipt Date: 20041125
  Transmission Date: 20050328
  Serious: Yes (Hospitalization)
  Sender: FDA-Public Use
  Company Number: HQWYE254024NOV03

PATIENT
  Age: 54 Year
  Sex: Female

DRUGS (9)
  1. CYCLOSPORINE [Suspect]
     Indication: PROPHYLAXIS AGAINST TRANSPLANT REJECTION
     Dosage: SEE IMAGE
     Route: 048
     Dates: start: 20021018, end: 20020101
  2. CYCLOSPORINE [Suspect]
     Indication: PROPHYLAXIS AGAINST TRANSPLANT REJECTION
     Dosage: SEE IMAGE
     Route: 048
     Dates: start: 20020101
  3. AZATHIOPRINE [Concomitant]
  4. CAPTOPRIL [Concomitant]
  5. CYCLOSPORINE [Concomitant]
  6. LASIX [Concomitant]
  7. PREDNISONE [Concomitant]
  8. RANITIDINE [Concomitant]
  9. SIMVASTATIN [Concomitant]

REACTIONS (6)
  - ADENOCARCINOMA OF THE CERVIX [None]
  - ENDOMETRIAL CANCER [None]
  - HAEMOGLOBIN DECREASED [None]
  - IMMUNOSUPPRESSION [None]
  - METASTASES TO UTERUS [None]
  - METASTASIS [None]
